FAERS Safety Report 6028941-2 (Version None)
Quarter: 2009Q1

REPORT INFORMATION
  Report Type: 
  Country: None (occurrence: None)
  Receive Date: 20090102
  Receipt Date: 20081222
  Transmission Date: 20090719
  Serious: Yes (Other)
  Sender: FDA-Public Use
  Company Number: 2008BM000254

PATIENT
  Age: 48 Year
  Sex: Female
  Weight: 12.5 kg

DRUGS (3)
  1. NAGLAZYME [Suspect]
     Indication: MUCOPOLYSACCHARIDOSIS VI
     Dosage: 10 MG; QW; IVDRP
     Route: 041
     Dates: start: 20080918
  2. ACETAMINOPHEN [Concomitant]
  3. CHLORPHENTERMINE 65MG TAB [Concomitant]

REACTIONS (2)
  - ANAEMIA [None]
  - MALNUTRITION [None]
